FAERS Safety Report 7978349-5 (Version None)
Quarter: 2011Q4

REPORT INFORMATION
  Report Type: 
  Country: None (occurrence: None)
  Receive Date: 20111214
  Receipt Date: 20111208
  Transmission Date: 20120403
  Serious: Yes (Other)
  Sender: FDA-Public Use
  Company Number: CH-PFIZER INC-2011196232

PATIENT
  Age: 45 Year
  Sex: Female
  Weight: 47 kg

DRUGS (4)
  1. IBRUPROFEN [Concomitant]
     Dosage: 600 MG, THREE TIMES PER DAY AS NEEDED
     Route: 048
  2. METHOTREXATE SODIUM [Suspect]
     Dosage: 15 MG, WEEKLY
     Route: 058
     Dates: start: 20091215
  3. ENBREL [Suspect]
     Dosage: 50 MG, WEEKLY
     Route: 058
     Dates: start: 20110601, end: 20110701
  4. SULFASALAZINE [Suspect]
     Dosage: 1000 MG, 2X/DAY
     Route: 048
     Dates: start: 20110601

REACTIONS (3)
  - LYMPHADENITIS [None]
  - LYMPHADENOPATHY [None]
  - HISTIOCYTIC NECROTISING LYMPHADENITIS [None]
